FAERS Safety Report 7404243-4 (Version None)
Quarter: 2011Q2

REPORT INFORMATION
  Report Type: 
  Country: None (occurrence: None)
  Receive Date: 20110408
  Receipt Date: 20100226
  Transmission Date: 20111010
  Serious: Yes (Hospitalization)
  Sender: FDA-Public Use
  Company Number: PHHY2010DE91094

PATIENT
  Sex: Male

DRUGS (1)
  1. EXTAVIA [Suspect]
     Dosage: UNK
     Dates: start: 20091130

REACTIONS (4)
  - TEMPERATURE INTOLERANCE [None]
  - INFLUENZA [None]
  - OEDEMA PERIPHERAL [None]
  - HYPOAESTHESIA [None]
